FAERS Safety Report 5742815-3 (Version None)
Quarter: 2008Q2

REPORT INFORMATION
  Report Type: 
  Country: None (occurrence: None)
  Receive Date: 20080519
  Receipt Date: 20080505
  Transmission Date: 20081010
  Serious: Yes (Hospitalization)
  Sender: FDA-Public Use
  Company Number: CN-ROCHE-562641

PATIENT
  Age: 40 Year
  Sex: Female

DRUGS (2)
  1. PEGASYS [Suspect]
     Route: 058
     Dates: start: 20070801, end: 20080401
  2. RIBAVIRIN [Concomitant]
     Dates: start: 20070801, end: 20080401

REACTIONS (4)
  - INJECTION SITE HAEMORRHAGE [None]
  - MENORRHAGIA [None]
  - PLATELET COUNT DECREASED [None]
  - SUBARACHNOID HAEMORRHAGE [None]
